FAERS Safety Report 9609265 (Version 2)
Quarter: 2013Q4

REPORT INFORMATION
  Report Type: Spontaneous
  Country: US (occurrence: US)
  Receive Date: 20131009
  Receipt Date: 20131009
  Transmission Date: 20140711
  Serious: No
  Sender: FDA-Public Use
  Company Number: US-PURDUE-USA-2012-0094761

PATIENT
  Sex: Female
  Weight: 56.69 kg

DRUGS (2)
  1. BUTRANS [Suspect]
     Indication: PAIN
     Dosage: 10 MCG, Q1H
     Route: 062
     Dates: start: 20120621, end: 201208
  2. BUTRANS [Suspect]
     Dosage: 5 MCG, Q1H
     Route: 062

REACTIONS (5)
  - Application site discolouration [Unknown]
  - Application site pain [Recovered/Resolved]
  - Application site pruritus [Unknown]
  - Application site rash [Not Recovered/Not Resolved]
  - Inadequate analgesia [Unknown]
